FAERS Safety Report 5550671-1 (Version None)
Quarter: 2007Q4

REPORT INFORMATION
  Report Type: 
  Country: None (occurrence: None)
  Receive Date: 20071212
  Receipt Date: 20070508
  Transmission Date: 20080405
  Serious: No
  Sender: FDA-Public Use
  Company Number: US-AMGEN-KDL223833

PATIENT
  Sex: Female

DRUGS (1)
  1. ENBREL [Suspect]
     Indication: PSORIATIC ARTHROPATHY
     Route: 058
     Dates: start: 20050802

REACTIONS (7)
  - BALANCE DISORDER [None]
  - CHRONIC FATIGUE SYNDROME [None]
  - DIPLOPIA [None]
  - DIZZINESS [None]
  - FALL [None]
  - PNEUMONIA [None]
  - VISION BLURRED [None]
